FAERS Safety Report 20775806 (Version 1)
Quarter: 2022Q2

REPORT INFORMATION
  Report Type: Spontaneous
  Country: US (occurrence: US)
  Receive Date: 20220502
  Receipt Date: 20220502
  Transmission Date: 20220721
  Serious: No
  Sender: FDA-Public Use
  Company Number: US-PFIZER INC-2021304459

PATIENT
  Age: 66 Year
  Sex: Male

DRUGS (2)
  1. EFFEXOR XR [Suspect]
     Active Substance: VENLAFAXINE HYDROCHLORIDE
     Dosage: 225 MG, DAILY (NOW I WAS TAKING 225MG EVERYDAY)
  2. EFFEXOR XR [Suspect]
     Active Substance: VENLAFAXINE HYDROCHLORIDE
     Dosage: 37.5 MG, (PER 14-18DAYS )

REACTIONS (5)
  - Intentional product misuse [Unknown]
  - Feeling abnormal [Unknown]
  - Discomfort [Unknown]
  - Dizziness [Unknown]
  - Malaise [Unknown]
